FAERS Safety Report 5482981-0 (Version None)
Quarter: 2007Q4

REPORT INFORMATION
  Report Type: 
  Country: None (occurrence: None)
  Receive Date: 20071011
  Receipt Date: 20070926
  Transmission Date: 20080405
  Serious: No
  Sender: FDA-Public Use
  Company Number: US-BOEHRINGER INGELHEIM PHARMACEUTICALS, INC.-2007-BP-21739BP

PATIENT
  Age: 62 Year
  Sex: Male
  Weight: 91 kg

DRUGS (7)
  1. ATROVENT HFA [Suspect]
     Indication: CHRONIC OBSTRUCTIVE PULMONARY DISEASE
     Route: 055
  2. XOPENEX HFA [Suspect]
     Indication: CHRONIC OBSTRUCTIVE PULMONARY DISEASE
     Route: 055
     Dates: start: 20070601
  3. KLONOPIN [Concomitant]
  4. PAXIL [Concomitant]
  5. PROPRANOLOL [Concomitant]
  6. ATORVASTATIN CALCIUM [Concomitant]
  7. RANITIDINE HCL [Concomitant]

REACTIONS (2)
  - DYSGEUSIA [None]
  - INCREASED UPPER AIRWAY SECRETION [None]
